FAERS Safety Report 21861782 (Version 1)
Quarter: 2023Q1

REPORT INFORMATION
  Report Type: Spontaneous
  Country: US (occurrence: None)
  Receive Date: 20230112
  Receipt Date: 20230112
  Transmission Date: 20230418
  Serious: No
  Sender: FDA-Public Use
  Company Number: None

PATIENT
  Age: 65 Year
  Sex: Female
  Weight: 62.14 kg

DRUGS (1)
  1. ORENCIA [Suspect]
     Active Substance: ABATACEPT
     Indication: Rheumatoid arthritis
     Dosage: INFUSE 750MG INTRAVENOUSLY OVER 1  HOUR AT WEEKS 0, 2, AND 4 AS DIRECTED?
     Route: 042
     Dates: start: 202109

REACTIONS (1)
  - Pneumonia [None]
